FAERS Safety Report 10295089 (Version 2)
Quarter: 2014Q3

REPORT INFORMATION
  Report Type: Report from Study
  Country: US (occurrence: US)
  Receive Date: 20140710
  Receipt Date: 20140812
  Transmission Date: 20150326
  Serious: Yes (Hospitalization)
  Sender: FDA-Public Use
  Company Number: US-JNJFOC-20140706102

PATIENT
  Age: 64 Year
  Sex: Female

DRUGS (3)
  1. IBRUTINIB [Suspect]
     Active Substance: IBRUTINIB
     Indication: CHRONIC LYMPHOCYTIC LEUKAEMIA
     Dosage: STOPPED DUE TO MULTIPLE TESTS BEING COMPLETED
     Route: 048
     Dates: start: 20120402, end: 201405
  2. IBRUTINIB [Suspect]
     Active Substance: IBRUTINIB
     Indication: CHRONIC LYMPHOCYTIC LEUKAEMIA
     Dosage: STOPPED DUE TO MULTIPLE TESTS BEING COMPLETED
     Route: 048
     Dates: start: 20140529, end: 20140601
  3. IBRUTINIB [Suspect]
     Active Substance: IBRUTINIB
     Indication: CHRONIC LYMPHOCYTIC LEUKAEMIA
     Dosage: RESTARTED AFTER DISCHARGE FROM HOSPITAL
     Route: 048
     Dates: start: 2014

REACTIONS (2)
  - Pleural effusion [Recovered/Resolved]
  - Pneumonia [Recovered/Resolved]

NARRATIVE: CASE EVENT DATE: 20140527
